FAERS Safety Report 25926720 (Version 1)
Quarter: 2025Q4

REPORT INFORMATION
  Report Type: Spontaneous
  Country: RS (occurrence: RS)
  Receive Date: 20251015
  Receipt Date: 20251015
  Transmission Date: 20260118
  Serious: Yes (Hospitalization)
  Sender: AMGEN
  Company Number: RS-AMGEN-SRBSP2025201565

PATIENT
  Age: 38 Year
  Sex: Male

DRUGS (7)
  1. ADALIMUMAB [Suspect]
     Active Substance: ADALIMUMAB
     Indication: Spondylitis
     Dosage: UNK, UNK
     Route: 065
  2. ETANERCEPT [Suspect]
     Active Substance: ETANERCEPT
     Indication: Spondylitis
     Dosage: UNK
     Route: 065
  3. CORTICOSTEROID NOS [Concomitant]
     Active Substance: CORTICOSTEROID NOS
     Indication: Spondylitis
  4. SULFASALAZINE [Concomitant]
     Active Substance: SULFASALAZINE
     Indication: Spondylitis
  5. METHOTREXATE [Concomitant]
     Active Substance: METHOTREXATE
     Indication: Spondylitis
  6. GOLIMUMAB [Concomitant]
     Active Substance: GOLIMUMAB
     Indication: Spondylitis
  7. SECUKINUMAB [Concomitant]
     Active Substance: SECUKINUMAB
     Indication: Spondylitis

REACTIONS (10)
  - Red blood cell sedimentation rate increased [Unknown]
  - Polyarthritis [Unknown]
  - Proteinuria [Unknown]
  - C-reactive protein increased [Unknown]
  - Hypoproteinaemia [Unknown]
  - Joint ankylosis [Unknown]
  - Amyloidosis [Unknown]
  - Anaemia [Unknown]
  - Renal impairment [Unknown]
  - Drug ineffective [Unknown]

NARRATIVE: CASE EVENT DATE: 20240101
